FAERS Safety Report 8028389-5 (Version None)
Quarter: 2012Q1

REPORT INFORMATION
  Report Type: 
  Country: None (occurrence: None)
  Receive Date: 20120106
  Receipt Date: 20120103
  Transmission Date: 20120608
  Serious: Yes (Other)
  Sender: FDA-Public Use
  Company Number: US-BAYER-2011-103878

PATIENT
  Age: 37 Year
  Sex: Female
  Weight: 102.95 kg

DRUGS (2)
  1. MIRENA [Suspect]
     Indication: CONTRACEPTION
     Dosage: 20 MCG/24HR, CONT
     Route: 015
     Dates: start: 20100914, end: 20111024
  2. LISINOPRIL [Concomitant]
     Indication: HYPERTENSION
     Dosage: UNK

REACTIONS (11)
  - HEADACHE [None]
  - BREAST DISORDER [None]
  - DEVICE EXPULSION [None]
  - ADNEXA UTERI CYST [None]
  - POST PROCEDURAL HAEMORRHAGE [None]
  - LIBIDO INCREASED [None]
  - FATIGUE [None]
  - HYPOMENORRHOEA [None]
  - ABORTION MISSED [None]
  - PAIN [None]
  - PREGNANCY WITH CONTRACEPTIVE DEVICE [None]
